FAERS Safety Report 10142163 (Version 1)
Quarter: 2014Q2

REPORT INFORMATION
  Report Type: Report from Study
  Country: US (occurrence: US)
  Receive Date: 20140429
  Receipt Date: 20140429
  Transmission Date: 20141212
  Serious: Yes (Other)
  Sender: FDA-Public Use
  Company Number: US-ASTELLAS-2014US004569

PATIENT
  Sex: 0

DRUGS (3)
  1. ERLOTINIB [Suspect]
     Indication: NON-SMALL CELL LUNG CANCER METASTATIC
     Route: 065
  2. DOVITINIB LACTATE [Suspect]
     Indication: NON-SMALL CELL LUNG CANCER METASTATIC
     Route: 065
  3. DOVITINIB LACTATE [Suspect]
     Route: 065

REACTIONS (3)
  - Syncope [Unknown]
  - Fatigue [Unknown]
  - Pulmonary embolism [Unknown]
